FAERS Safety Report 25859111 (Version 3)
Quarter: 2025Q4

REPORT INFORMATION
  Report Type: Spontaneous
  Country: RU (occurrence: RU)
  Receive Date: 20250929
  Receipt Date: 20251020
  Transmission Date: 20260117
  Serious: Yes (Other)
  Sender: ABBVIE
  Company Number: RU-ABBVIE-6477562

PATIENT
  Age: 36 Year
  Sex: Female
  Weight: 89 kg

DRUGS (1)
  1. SKYRIZI [Suspect]
     Active Substance: RISANKIZUMAB-RZAA
     Indication: Psoriasis
     Dosage: FREQUENCY: TWO INJECTION
     Route: 058
     Dates: start: 20250721, end: 20250818

REACTIONS (5)
  - Oedema peripheral [Recovered/Resolved]
  - Arthralgia [Recovered/Resolved]
  - Obesity [Unknown]
  - Hyperglycaemia [Unknown]
  - Lymphoedema [Unknown]

NARRATIVE: CASE EVENT DATE: 20250101
